FAERS Safety Report 8380614-7 (Version None)
Quarter: 2012Q2

REPORT INFORMATION
  Report Type: 
  Country: None (occurrence: None)
  Receive Date: 20120523
  Receipt Date: 20120510
  Transmission Date: 20120825
  Serious: Yes (Death, Other)
  Sender: FDA-Public Use
  Company Number: US-ACTELION-A-CH2012-65752

PATIENT
  Age: 58 Year
  Sex: Female

DRUGS (2)
  1. EPOPROSTENOL SODIUM [Suspect]
     Dosage: 14 NG/KG, PER MIN
     Route: 041
  2. EPOPROSTENOL SODIUM [Suspect]
     Indication: PULMONARY ARTERIAL HYPERTENSION
     Dosage: UNK
     Route: 042

REACTIONS (5)
  - NO THERAPEUTIC RESPONSE [None]
  - RIGHT VENTRICULAR FAILURE [None]
  - PULMONARY VENO-OCCLUSIVE DISEASE [None]
  - DYSPNOEA [None]
  - SUDDEN DEATH [None]
